FAERS Safety Report 11919683 (Version 1)
Quarter: 2016Q1

REPORT INFORMATION
  Report Type: Spontaneous
  Country: US (occurrence: US)
  Receive Date: 20160115
  Receipt Date: 20160115
  Transmission Date: 20160526
  Serious: Yes (Other)
  Sender: FDA-Public Use
  Company Number: US-PFIZER INC-2016015589

PATIENT
  Age: 7 Decade
  Weight: 70.3 kg

DRUGS (2)
  1. ORUVAIL [Concomitant]
     Active Substance: KETOPROFEN
     Indication: SYSTEMIC LUPUS ERYTHEMATOSUS
     Dosage: UNK
  2. CORTISONE ACETATE. [Suspect]
     Active Substance: CORTISONE ACETATE
     Indication: HYPERSENSITIVITY
     Dosage: UNK
     Dates: start: 1987

REACTIONS (1)
  - Glaucoma [Recovering/Resolving]
